FAERS Safety Report 17007784 (Version 9)
Quarter: 2020Q4

REPORT INFORMATION
  Report Type: Spontaneous
  Country: JP (occurrence: JP)
  Receive Date: 20191108
  Receipt Date: 20201223
  Transmission Date: 20210113
  Serious: Yes (Hospitalization, Other)
  Sender: FDA-Public Use
  Company Number: JP-BRISTOL-MYERS SQUIBB COMPANY-BMS-2019-105190

PATIENT
  Age: 26 Year
  Sex: Female
  Weight: 53.6 kg

DRUGS (7)
  1. OPDIVO [Suspect]
     Active Substance: NIVOLUMAB
     Dosage: UNK
     Route: 041
     Dates: start: 20191114
  2. YERVOY [Suspect]
     Active Substance: IPILIMUMAB
     Dosage: 150 MILLIGRAM, ONE TIME DOSE
     Route: 041
     Dates: start: 20190704, end: 20190704
  3. YERVOY [Suspect]
     Active Substance: IPILIMUMAB
     Dosage: 150 MILLIGRAM, ONE TIME DOSE
     Route: 041
     Dates: start: 20190808, end: 20190808
  4. OPDIVO [Suspect]
     Active Substance: NIVOLUMAB
     Indication: MALIGNANT MELANOMA
     Dosage: 80 MILLIGRAM, ONE TIME DOSE
     Route: 041
     Dates: start: 20190408, end: 20190408
  5. OPDIVO [Suspect]
     Active Substance: NIVOLUMAB
     Dosage: 80 MILLIGRAM, ONE TIME DOSE
     Route: 041
     Dates: start: 20190704, end: 20190704
  6. OPDIVO [Suspect]
     Active Substance: NIVOLUMAB
     Dosage: 80 MILLIGRAM, ONE TIME DOSE
     Route: 041
     Dates: start: 20190808, end: 20190808
  7. YERVOY [Suspect]
     Active Substance: IPILIMUMAB
     Indication: MALIGNANT MELANOMA
     Dosage: 150 MILLIGRAM, ONE TIME DOSE
     Route: 041
     Dates: start: 20190408, end: 20190408

REACTIONS (9)
  - Abdominal pain upper [Unknown]
  - Diarrhoea [Recovered/Resolved]
  - Renal impairment [Unknown]
  - Pyrexia [Unknown]
  - Cytokine release syndrome [Recovered/Resolved]
  - Immune-mediated hepatic disorder [Recovered/Resolved]
  - Vogt-Koyanagi-Harada disease [Recovering/Resolving]
  - Eating disorder [Unknown]
  - Uveitis [Recovering/Resolving]

NARRATIVE: CASE EVENT DATE: 20190408
